FAERS Safety Report 4808437-3 (Version None)
Quarter: 2005Q4

REPORT INFORMATION
  Report Type: 
  Country: None (occurrence: None)
  Receive Date: 20051021
  Receipt Date: 20041112
  Transmission Date: 20060501
  Serious: No
  Sender: FDA-Public Use
  Company Number: JP_041105206

PATIENT
  Age: 69 Year
  Sex: Female

DRUGS (4)
  1. ZYPREXA [Suspect]
     Indication: SCHIZOPHRENIA
     Dosage: 2.5 MG DAY
     Dates: start: 20031023, end: 20040929
  2. HALOPERIDOL [Concomitant]
  3. ESTAZOLAM [Concomitant]
  4. FERROMIA (FERROUS CITRATE) [Concomitant]

REACTIONS (4)
  - ANAEMIA [None]
  - HYPOKALAEMIA [None]
  - HYPOPROTEINAEMIA [None]
  - OEDEMA PERIPHERAL [None]
